FAERS Safety Report 7094122-7 (Version None)
Quarter: 2010Q4

REPORT INFORMATION
  Report Type: 
  Country: None (occurrence: None)
  Receive Date: 20101110
  Receipt Date: 20101103
  Transmission Date: 20110411
  Serious: Yes (Hospitalization)
  Sender: FDA-Public Use
  Company Number: FR-SANOFI-AVENTIS-2010SA066704

PATIENT
  Age: 75 Year
  Sex: Male

DRUGS (15)
  1. PLAVIX [Suspect]
     Route: 048
     Dates: start: 20100101
  2. ASPEGIC 1000 [Interacting]
     Dates: start: 20100901
  3. CORDARONE [Interacting]
     Route: 048
     Dates: start: 20100913
  4. PREVISCAN [Interacting]
     Route: 048
     Dates: start: 20100921, end: 20100924
  5. PREVISCAN [Interacting]
     Route: 048
     Dates: start: 20100901, end: 20100901
  6. FUROSEMIDE [Concomitant]
  7. ATARAX [Concomitant]
  8. FORLAX [Concomitant]
  9. FLUTICASONE/SALMETEROL [Concomitant]
  10. SPIRIVA [Concomitant]
  11. TAMSULOSIN HCL [Concomitant]
  12. TRIATEC [Concomitant]
  13. TAHOR [Concomitant]
  14. NITROGLYCERIN [Concomitant]
  15. ESOMEPRAZOLE [Concomitant]

REACTIONS (4)
  - DRUG INTERACTION [None]
  - INTERNATIONAL NORMALISED RATIO INCREASED [None]
  - OVERDOSE [None]
  - RECTAL HAEMORRHAGE [None]
